FAERS Safety Report 5570676-4 (Version None)
Quarter: 2007Q4

REPORT INFORMATION
  Report Type: 
  Country: None (occurrence: None)
  Receive Date: 20071221
  Receipt Date: 20071217
  Transmission Date: 20080405
  Serious: Yes (Hospitalization)
  Sender: FDA-Public Use
  Company Number: BR-JNJFOC-20071204633

PATIENT
  Age: 46 Year
  Sex: Female
  Weight: 60 kg

DRUGS (8)
  1. HALDOL [Suspect]
     Indication: DEPRESSION
     Route: 048
  2. HALDOL [Suspect]
     Indication: ANXIETY
     Route: 048
  3. HALDOL [Suspect]
     Indication: MORBID THOUGHTS
     Route: 048
  4. CLONAZEPAM [Suspect]
     Indication: NERVOUS SYSTEM DISORDER
  5. CLONAZEPAM [Suspect]
     Indication: ANXIETY
  6. PROMETHAZINE [Concomitant]
     Indication: PROPHYLAXIS
     Route: 048
  7. HYDROCHLOROTHIAZIDE [Concomitant]
     Indication: HYPERTENSION
     Route: 048
  8. ENALAPRIL [Concomitant]
     Indication: HYPERTENSION

REACTIONS (3)
  - DYSKINESIA [None]
  - EYELID OEDEMA [None]
  - VISION BLURRED [None]
